FAERS Safety Report 4401082-3 (Version None)
Quarter: 2004Q3

REPORT INFORMATION
  Report Type: 
  Country: None (occurrence: None)
  Receive Date: 20040907
  Receipt Date: 20031020
  Transmission Date: 20050211
  Serious: No
  Sender: FDA-Public Use
  Company Number: US-BRISTOL-MYERS SQUIBB COMPANY-12415717

PATIENT
  Age: 54 Year
  Sex: Female
  Weight: 74 kg

DRUGS (3)
  1. COUMADIN [Suspect]
     Indication: PULMONARY EMBOLISM
     Dosage: STARTED 1 MG DAILY,INCREASED TO 2 MG QD ON 10-SEP-2003
     Route: 048
     Dates: start: 20030821
  2. COLACE [Concomitant]
  3. METAMUCIL-2 [Concomitant]

REACTIONS (1)
  - ALOPECIA [None]
